FAERS Safety Report 18534305 (Version 1)
Quarter: 2020Q4

REPORT INFORMATION
  Report Type: Spontaneous
  Country: US (occurrence: US)
  Receive Date: 20201123
  Receipt Date: 20201123
  Transmission Date: 20210114
  Serious: No
  Sender: FDA-Public Use
  Company Number: None

PATIENT
  Age: 86 Year
  Sex: Female
  Weight: 59.4 kg

DRUGS (9)
  1. ANTIVERT [Concomitant]
     Active Substance: MECLIZINE HYDROCHLORIDE
  2. NITROGLYCERIN. [Concomitant]
     Active Substance: NITROGLYCERIN
  3. OLMESARTAN-HCTZ [Concomitant]
     Active Substance: HYDROCHLOROTHIAZIDE\OLMESARTAN MEDOXOMIL
  4. URO-BLUE TABLET [Concomitant]
  5. CAPECITABINE. [Suspect]
     Active Substance: CAPECITABINE
     Indication: COLON CANCER
     Dosage: ?          OTHER FREQUENCY:BID 7ON/ 7 OFF;?
     Route: 048
     Dates: start: 20201009
  6. DONEPEZIL. [Concomitant]
     Active Substance: DONEPEZIL
  7. LUMIGAN [Concomitant]
     Active Substance: BIMATOPROST
  8. OMEGA [Concomitant]
  9. PLAVIX [Concomitant]
     Active Substance: CLOPIDOGREL BISULFATE

REACTIONS (1)
  - Hospice care [None]

NARRATIVE: CASE EVENT DATE: 20201123
